FAERS Safety Report 23361925 (Version 5)
Quarter: 2024Q1

REPORT INFORMATION
  Report Type: Report from Study
  Country: ES (occurrence: ES)
  Receive Date: 20240103
  Receipt Date: 20240311
  Transmission Date: 20240409
  Serious: Yes (Hospitalization, Other)
  Sender: FDA-Public Use
  Company Number: ES-BAXTER-2023BAX039383

PATIENT
  Age: 64 Year
  Sex: Female
  Weight: 50 kg

DRUGS (23)
  1. CYCLOPHOSPHAMIDE [Suspect]
     Active Substance: CYCLOPHOSPHAMIDE
     Indication: Diffuse large B-cell lymphoma
     Dosage: 1162.5 MG, EVERY 3 WEEKS, ONGOING
     Route: 042
     Dates: start: 20231128
  2. EPCORITAMAB [Suspect]
     Active Substance: EPCORITAMAB
     Indication: Diffuse large B-cell lymphoma
     Dosage: 0.16 MG PRIMING DOSE, C1, D1, TOTAL
     Route: 058
     Dates: start: 20231128, end: 20231128
  3. EPCORITAMAB [Suspect]
     Active Substance: EPCORITAMAB
     Dosage: 0.8 MG INTERMEDIATE DOSE, C1, D8, TOTAL
     Route: 058
     Dates: start: 20231205, end: 20231205
  4. EPCORITAMAB [Suspect]
     Active Substance: EPCORITAMAB
     Dosage: 48 MG FULL DOSE, C1, D15, AND 22, EVERY 1 WEEKS, ONGOING
     Route: 058
     Dates: start: 20231212
  5. VINCRISTINE [Suspect]
     Active Substance: VINCRISTINE
     Indication: Diffuse large B-cell lymphoma
     Dosage: 2 MG, EVERY 3 WEEKS, ONGOING
     Route: 042
     Dates: start: 20231128
  6. RITUXIMAB [Suspect]
     Active Substance: RITUXIMAB
     Indication: Diffuse large B-cell lymphoma
     Dosage: 581.25 MG, EVERY 3 WEEKS, ONGOING
     Route: 042
     Dates: start: 20231128
  7. DOXORUBICIN [Suspect]
     Active Substance: DOXORUBICIN
     Indication: Diffuse large B-cell lymphoma
     Dosage: 77.5 MG, EVERY 3 WEEK, ONGOING
     Route: 042
     Dates: start: 20231128
  8. PREDNISONE [Suspect]
     Active Substance: PREDNISONE
     Indication: Diffuse large B-cell lymphoma
     Dosage: 100 MG, C1-6, DAY 1-5, EVERY 1 DAYS, ONGOING
     Route: 048
     Dates: start: 20231128
  9. ALLOPURINOL [Concomitant]
     Active Substance: ALLOPURINOL
     Indication: Prophylaxis
     Dosage: 300 MG, EVERY 24 HOURS
     Route: 065
     Dates: start: 20231114, end: 20231218
  10. OMEPRAZOLE [Concomitant]
     Active Substance: OMEPRAZOLE
     Indication: Gastrointestinal disorder prophylaxis
     Dosage: 20 MG, EVERY 24 HOURS
     Route: 065
     Dates: start: 20231107
  11. ACETAMINOPHEN [Concomitant]
     Active Substance: ACETAMINOPHEN
     Indication: Pain prophylaxis
     Dosage: 1 G, AS NECESSARY
     Route: 065
     Dates: start: 20231011
  12. ONDANSETRON [Concomitant]
     Active Substance: ONDANSETRON
     Indication: Prophylaxis of nausea and vomiting
     Dosage: 8 MG, AS NECESSARY
     Route: 065
     Dates: start: 20231121
  13. CODEINE [Concomitant]
     Active Substance: CODEINE
     Indication: Pain prophylaxis
     Dosage: 28.7 MG, EVERY 8 HOURS
     Route: 065
     Dates: start: 20231107
  14. ACYCLOVIR [Concomitant]
     Active Substance: ACYCLOVIR
     Indication: Infection prophylaxis
     Dosage: 800 MG, EVERY 24 HOURS
     Route: 065
     Dates: start: 20231120
  15. TRIMETHOPRIM [Concomitant]
     Active Substance: TRIMETHOPRIM
     Indication: Infection prophylaxis
     Dosage: 80 MG, 3/WEEKS
     Route: 065
     Dates: start: 20231120
  16. SULFAMETHOXAZOLE [Concomitant]
     Active Substance: SULFAMETHOXAZOLE
     Indication: Infection prophylaxis
     Dosage: 400 MG, 3/WEEKS
     Route: 065
     Dates: start: 20231120
  17. MOVICOL [Concomitant]
     Active Substance: POLYETHYLENE GLYCOL 3350\POTASSIUM CHLORIDE\SODIUM BICARBONATE\SODIUM CHLORIDE
     Indication: Constipation prophylaxis
     Dosage: 125 ML, AS NECESSARY
     Route: 065
     Dates: start: 20231121
  18. SULPIRIDE [Concomitant]
     Active Substance: SULPIRIDE
     Indication: Prophylaxis
     Dosage: 50 MG, AS NECESSARY
     Route: 065
     Dates: start: 20231204
  19. DEXAMETHASONE [Concomitant]
     Active Substance: DEXAMETHASONE
     Indication: Prophylaxis
     Dosage: 16 MG, EVERY 1 DAYS
     Route: 065
     Dates: start: 20231205
  20. GRANULOCYTE COLONY-STIMULATING FACTOR NOS [Concomitant]
     Active Substance: GRANULOCYTE COLONY-STIMULATING FACTOR NOS
     Indication: Prophylaxis
     Dosage: 300 UG, AS NECESSARY
     Route: 065
     Dates: start: 20231204
  21. GRANULOCYTE COLONY-STIMULATING FACTOR NOS [Concomitant]
     Active Substance: GRANULOCYTE COLONY-STIMULATING FACTOR NOS
     Indication: Neutropenia
  22. VINCRISTINE [Concomitant]
     Active Substance: VINCRISTINE
     Indication: Premedication
     Dosage: 1 MG, TOTAL
     Route: 065
     Dates: start: 20231121, end: 20231121
  23. PREDNISONE [Concomitant]
     Active Substance: PREDNISONE
     Indication: Premedication
     Dosage: 60 MG, EVERY 24 HOURS
     Route: 065
     Dates: start: 20231114, end: 20231120

REACTIONS (2)
  - Cytokine release syndrome [Recovered/Resolved]
  - Influenza [Recovered/Resolved]

NARRATIVE: CASE EVENT DATE: 20231213
